FAERS Safety Report 13770994 (Version 1)
Quarter: 2017Q3

REPORT INFORMATION
  Report Type: Spontaneous
  Country: US (occurrence: US)
  Receive Date: 20170720
  Receipt Date: 20170720
  Transmission Date: 20171127
  Serious: Yes (Life-Threatening, Other)
  Sender: FDA-Public Use
  Company Number: None

PATIENT
  Age: 53 Year
  Sex: Male
  Weight: 107.1 kg

DRUGS (17)
  1. BENADRYL [Concomitant]
     Active Substance: DIPHENHYDRAMINE HYDROCHLORIDE
  2. ASPIRIN. [Concomitant]
     Active Substance: ASPIRIN
  3. FENOFIBRATE. [Concomitant]
     Active Substance: FENOFIBRATE
  4. AMITIZA [Concomitant]
     Active Substance: LUBIPROSTONE
  5. VITAMIN D [Concomitant]
     Active Substance: CHOLECALCIFEROL
  6. DULOXETINE. [Suspect]
     Active Substance: DULOXETINE
     Indication: SCIATICA
     Dosage: ?          OTHER STRENGTH:MG;QUANTITY:60 CAPSULE(S);?
     Route: 048
     Dates: start: 20170529
  7. ALBUTEROL. [Concomitant]
     Active Substance: ALBUTEROL
  8. HYDROCODONE [Concomitant]
     Active Substance: HYDROCODONE
  9. CYMBALTA [Concomitant]
     Active Substance: DULOXETINE HYDROCHLORIDE
  10. METFORMIN [Concomitant]
     Active Substance: METFORMIN HYDROCHLORIDE
  11. ATORVASTATIN [Concomitant]
     Active Substance: ATORVASTATIN
  12. MULTIVITAMIN [Concomitant]
     Active Substance: VITAMINS
  13. RANITIDINE. [Concomitant]
     Active Substance: RANITIDINE
  14. NIACIN. [Concomitant]
     Active Substance: NIACIN
  15. TELMISARTAN. [Concomitant]
     Active Substance: TELMISARTAN
  16. OXYCONTIN [Concomitant]
     Active Substance: OXYCODONE HYDROCHLORIDE
  17. FISH OIL [Concomitant]
     Active Substance: FISH OIL

REACTIONS (2)
  - Withdrawal syndrome [None]
  - Hepatic enzyme increased [None]

NARRATIVE: CASE EVENT DATE: 20170630
